FAERS Safety Report 12710648 (Version 1)
Quarter: 2016Q3

REPORT INFORMATION
  Report Type: Spontaneous
  Country: BR (occurrence: BR)
  Receive Date: 20160902
  Receipt Date: 20160902
  Transmission Date: 20161109
  Serious: Yes (Hospitalization)
  Sender: FDA-Public Use
  Company Number: BR-ROCHE-1824297

PATIENT
  Sex: Female
  Weight: 42 kg

DRUGS (1)
  1. ROCEPHIN [Suspect]
     Active Substance: CEFTRIAXONE SODIUM
     Indication: PNEUMONIA
     Route: 030
     Dates: start: 20160721, end: 20160731

REACTIONS (2)
  - Drug ineffective [Unknown]
  - Bradycardia [Unknown]
